FAERS Safety Report 5879616-1 (Version None)
Quarter: 2008Q3

REPORT INFORMATION
  Report Type: 
  Country: None (occurrence: None)
  Receive Date: 20080912
  Receipt Date: 20080902
  Transmission Date: 20090109
  Serious: Yes (Life-Threatening, Hospitalization, Other)
  Sender: FDA-Public Use
  Company Number: GB-ASTRAZENECA-2008GB01648

PATIENT
  Age: 60 Year
  Sex: Female

DRUGS (1)
  1. MERONEM [Suspect]
     Dosage: 1 GRAM GIVEN INTRAVENOUSLY WITH ANOTHER DOSE OF 1GRAM GIVEN LATER THAT DAY.
     Route: 042
     Dates: start: 20080717, end: 20080717

REACTIONS (1)
  - ANAPHYLACTIC REACTION [None]
